FAERS Safety Report 7108711-4 (Version None)
Quarter: 2010Q4

REPORT INFORMATION
  Report Type: 
  Country: None (occurrence: None)
  Receive Date: 20101117
  Receipt Date: 20101108
  Transmission Date: 20110411
  Serious: Yes (Hospitalization)
  Sender: FDA-Public Use
  Company Number: FR-NOVOPROD-315916

PATIENT
  Age: 71 Year
  Sex: Female
  Weight: 80 kg

DRUGS (7)
  1. VICTOZA [Suspect]
     Indication: TYPE 2 DIABETES MELLITUS
     Dosage: 1.2 MG, QD
     Route: 058
     Dates: start: 20100806, end: 20100920
  2. AMLOR [Concomitant]
     Dates: start: 20100803, end: 20100920
  3. INDAPAMIDE [Concomitant]
     Dates: start: 20100803, end: 20100920
  4. TAHOR [Concomitant]
     Dates: start: 20100803, end: 20100920
  5. KARDEGIC [Concomitant]
     Dosage: 75 MG, UNK
     Dates: start: 20080101
  6. METFORMIN [Concomitant]
     Dosage: UNK
     Dates: start: 20080101
  7. RAMIPRIL [Concomitant]
     Dosage: 10 MG, QD
     Route: 048
     Dates: start: 20090101

REACTIONS (1)
  - RENAL FAILURE ACUTE [None]
